FAERS Safety Report 24116194 (Version 1)
Quarter: 2024Q3

REPORT INFORMATION
  Report Type: Spontaneous
  Country: US (occurrence: None)
  Receive Date: 20240722
  Receipt Date: 20240722
  Transmission Date: 20241016
  Serious: No
  Sender: ASTRAZENECA
  Company Number: 2024A164979

PATIENT
  Age: 73 Year
  Sex: Male

DRUGS (2)
  1. CRESTOR [Suspect]
     Active Substance: ROSUVASTATIN CALCIUM
     Route: 048
  2. LEQVIO [Suspect]
     Active Substance: INCLISIRAN SODIUM

REACTIONS (4)
  - Tremor [Unknown]
  - Arthralgia [Unknown]
  - Asthenia [Unknown]
  - Intentional dose omission [Unknown]
